FAERS Safety Report 10072099 (Version 2)
Quarter: 2014Q2

REPORT INFORMATION
  Report Type: Spontaneous
  Country: DE (occurrence: None)
  Receive Date: 20140409
  Receipt Date: 20140505
  Transmission Date: 20141212
  Serious: Yes (Other)
  Sender: FDA-Public Use
  Company Number: 2014-19305

PATIENT
  Age: 77 Year
  Sex: Male

DRUGS (2)
  1. EYELEA [Suspect]
     Indication: AGE-RELATED MACULAR DEGENERATION
     Dosage: SINGLE
     Route: 031
     Dates: start: 20130507, end: 20130507
  2. AZOPT (BRINZOLAMIDE) (1 PERCENT) (BRINZOLAMIDE) [Concomitant]

REACTIONS (4)
  - Carotid artery stenosis [None]
  - Dizziness [None]
  - Dizziness [None]
  - Syncope [None]
